FAERS Safety Report 19299257 (Version 1)
Quarter: 2021Q2

REPORT INFORMATION
  Report Type: Report from Study
  Country: CA (occurrence: CA)
  Receive Date: 20210524
  Receipt Date: 20210524
  Transmission Date: 20210717
  Serious: Yes (Hospitalization)
  Sender: FDA-Public Use
  Company Number: CA-PFIZER INC-2021529564

PATIENT
  Age: 79 Year
  Sex: Male

DRUGS (20)
  1. RITUXIMAB. [Suspect]
     Active Substance: RITUXIMAB
     Indication: GRANULOMATOSIS WITH POLYANGIITIS
     Dosage: 1000 MG
     Route: 042
  2. CALCIUM CARBONATE. [Concomitant]
     Active Substance: CALCIUM CARBONATE
  3. MELATONIN [Concomitant]
     Active Substance: MELATONIN
  4. RIFAMPIN. [Concomitant]
     Active Substance: RIFAMPIN
  5. ISONIAZID. [Concomitant]
     Active Substance: ISONIAZID
  6. LOXAPINE. [Concomitant]
     Active Substance: LOXAPINE
  7. DIMENHYDRINATE. [Concomitant]
     Active Substance: DIMENHYDRINATE
  8. DOCUSATE [Concomitant]
     Active Substance: DOCUSATE
  9. PREDNISONE. [Concomitant]
     Active Substance: PREDNISONE
  10. PYRAZINAMIDE. [Concomitant]
     Active Substance: PYRAZINAMIDE
  11. AMLODIPINE [Concomitant]
     Active Substance: AMLODIPINE BESYLATE
  12. ETHAMBUTOL [Concomitant]
     Active Substance: ETHAMBUTOL HYDROCHLORIDE
  13. PREGABALIN. [Concomitant]
     Active Substance: PREGABALIN
  14. QUETIAPINE. [Concomitant]
     Active Substance: QUETIAPINE
  15. CAPTOPRIL. [Concomitant]
     Active Substance: CAPTOPRIL
  16. DALTEPARIN SODIUM [Concomitant]
     Active Substance: DALTEPARIN SODIUM
  17. SULFAMETHOXAZOLE/TRIMETHOPRIM [Concomitant]
     Active Substance: SULFAMETHOXAZOLE\TRIMETHOPRIM
  18. VITAMIN B6 [Concomitant]
     Active Substance: PYRIDOXINE HYDROCHLORIDE
  19. AMITRIPTYLINE/KETAMINE [Concomitant]
  20. RIVASTIGMINE. [Concomitant]
     Active Substance: RIVASTIGMINE

REACTIONS (1)
  - Illness [Unknown]
